FAERS Safety Report 16190494 (Version 1)
Quarter: 2019Q2

REPORT INFORMATION
  Report Type: Spontaneous
  Country: CN (occurrence: CN)
  Receive Date: 20190412
  Receipt Date: 20190412
  Transmission Date: 20190711
  Serious: Yes (Other)
  Sender: FDA-Public Use
  Company Number: CN-ROCHE-2296247

PATIENT
  Age: 75 Year
  Sex: Female

DRUGS (24)
  1. FLUOROURACIL. [Concomitant]
     Active Substance: FLUOROURACIL
     Indication: RECTAL ADENOCARCINOMA
     Dosage: 0.5, DAY1
     Route: 042
     Dates: start: 20171207, end: 20180317
  2. GIMERACIL [Concomitant]
     Active Substance: GIMERACIL
     Indication: METASTASES TO LUNG
     Dosage: DAY1- DAY14, EVERY 21 DAY
     Route: 065
     Dates: start: 20171112
  3. GIMERACIL [Concomitant]
     Active Substance: GIMERACIL
     Indication: RECTAL ADENOCARCINOMA
  4. OTERACIL POTASSIUM [Concomitant]
     Active Substance: OTERACIL POTASSIUM
     Indication: METASTASES TO LUNG
     Dosage: DAY1- DAY14, EVERY 21 DAY
     Route: 065
     Dates: start: 20171112
  5. BEVACIZUMAB. [Suspect]
     Active Substance: BEVACIZUMAB
     Indication: RECTAL ADENOCARCINOMA
     Dosage: 5 MG/KG (300 MG)
     Route: 065
     Dates: start: 20171207
  6. BEVACIZUMAB. [Suspect]
     Active Substance: BEVACIZUMAB
     Indication: METASTASES TO LIVER
     Dosage: 5 MG/KG (300 MG)
     Route: 065
     Dates: start: 20180210
  7. BEVACIZUMAB. [Suspect]
     Active Substance: BEVACIZUMAB
     Indication: METASTASES TO LUNG
  8. IRINOTECAN [Concomitant]
     Active Substance: IRINOTECAN
     Indication: RECTAL ADENOCARCINOMA
     Dosage: DAY 1
     Route: 065
     Dates: start: 20171207, end: 20180317
  9. LEVOFLOXACIN HYDROCHLORIDE [Concomitant]
     Active Substance: LEVOFLOXACIN HYDROCHLORIDE
  10. IRINOTECAN [Concomitant]
     Active Substance: IRINOTECAN
     Indication: METASTASES TO LUNG
  11. CALCIUM FOLINAT [Concomitant]
     Active Substance: LEUCOVORIN CALCIUM
     Indication: RECTAL ADENOCARCINOMA
     Dosage: 0.4, DAY1
     Route: 065
     Dates: start: 20171207, end: 20180317
  12. TEGAFUR [Concomitant]
     Active Substance: TEGAFUR
     Indication: RECTAL ADENOCARCINOMA
     Dosage: DAY1- DAY14, EVERY 21 DAY
     Route: 065
     Dates: start: 20171112
  13. OXALIPLATIN. [Concomitant]
     Active Substance: OXALIPLATIN
     Indication: RECTAL ADENOCARCINOMA
     Dosage: DAY1
     Route: 065
     Dates: start: 20171112
  14. OXALIPLATIN. [Concomitant]
     Active Substance: OXALIPLATIN
     Indication: RECTAL ADENOCARCINOMA
  15. TEGAFUR [Concomitant]
     Active Substance: TEGAFUR
     Indication: METASTASES TO LIVER
  16. OTERACIL POTASSIUM [Concomitant]
     Active Substance: OTERACIL POTASSIUM
     Indication: RECTAL ADENOCARCINOMA
  17. GIMERACIL [Concomitant]
     Active Substance: GIMERACIL
     Indication: METASTASES TO LIVER
  18. OXALIPLATIN. [Concomitant]
     Active Substance: OXALIPLATIN
     Indication: METASTASES TO LIVER
  19. IRINOTECAN [Concomitant]
     Active Substance: IRINOTECAN
     Indication: METASTASES TO LIVER
  20. FLUOROURACIL. [Concomitant]
     Active Substance: FLUOROURACIL
     Indication: METASTASES TO LIVER
     Dosage: 3.5
     Route: 065
     Dates: start: 20171207, end: 20180317
  21. FLUOROURACIL. [Concomitant]
     Active Substance: FLUOROURACIL
     Indication: METASTASES TO LUNG
  22. CALCIUM FOLINAT [Concomitant]
     Active Substance: LEUCOVORIN CALCIUM
     Indication: METASTASES TO LIVER
  23. CALCIUM FOLINAT [Concomitant]
     Active Substance: LEUCOVORIN CALCIUM
     Indication: METASTASES TO LUNG
  24. OTERACIL POTASSIUM [Concomitant]
     Active Substance: OTERACIL POTASSIUM
     Indication: METASTASES TO LIVER

REACTIONS (4)
  - White blood cell count decreased [Unknown]
  - Bone marrow failure [Unknown]
  - Vaginal haemorrhage [Unknown]
  - Pelvic fluid collection [Unknown]
